FAERS Safety Report 15047997 (Version 4)
Quarter: 2019Q4

REPORT INFORMATION
  Report Type: Report from Study
  Country: US (occurrence: US)
  Receive Date: 20180622
  Receipt Date: 20191223
  Transmission Date: 20200122
  Serious: Yes (Other)
  Sender: FDA-Public Use
  Company Number: US-ROCHE-2142148

PATIENT
  Age: 57 Year
  Sex: Female

DRUGS (2)
  1. OCREVUS [Suspect]
     Active Substance: OCRELIZUMAB
     Dosage: ONGOING: UNKNOWN ?HALF DOSE:?RECEIVED HALF DOSE OF OCRALIZUMAB ON /MAY/2018
     Route: 042
     Dates: start: 20180521
  2. OCREVUS [Suspect]
     Active Substance: OCRELIZUMAB
     Indication: MULTIPLE SCLEROSIS
     Dosage: HALF DOSE INFUSION ;ONGOING: YES?PREVIOUS DATE OF TREATMENT: 7/MAY/2018, 21/MAY/2018, 12/NOV/2018, 1
     Route: 042
     Dates: start: 20180507

REACTIONS (4)
  - Nervousness [Unknown]
  - Hemiparesis [Not Recovered/Not Resolved]
  - Anaphylactic shock [Recovered/Resolved]
  - Malaise [Recovered/Resolved]

NARRATIVE: CASE EVENT DATE: 20180507
